FAERS Safety Report 4365131-3 (Version None)
Quarter: 2004Q2

REPORT INFORMATION
  Report Type: 
  Country: None (occurrence: None)
  Receive Date: 20040520
  Receipt Date: 20040505
  Transmission Date: 20050107
  Serious: Yes (Death)
  Sender: FDA-Public Use
  Company Number: 206349

PATIENT
  Sex: Male

DRUGS (4)
  1. AVASTIN [Suspect]
     Indication: COLORECTAL CANCER METASTATIC
     Dosage: 300 MG, INTRAVENOUS
     Route: 042
     Dates: start: 20040430
  2. CPT-11 (IRINOTECAN HYDROCHLORIDE) [Concomitant]
  3. FLUOROURACIL [Concomitant]
  4. LEUCOVORIN CALCIUM [Concomitant]

REACTIONS (2)
  - CARDIO-RESPIRATORY ARREST [None]
  - COMA [None]
